FAERS Safety Report 5590235-7 (Version None)
Quarter: 2007Q4

REPORT INFORMATION
  Report Type: 
  Country: None (occurrence: None)
  Receive Date: 20071217
  Receipt Date: 20070910
  Transmission Date: 20080405
  Serious: No
  Sender: FDA-Public Use
  Company Number: BDI-010181

PATIENT
  Age: 80 Year
  Sex: Male
  Weight: 89 kg

DRUGS (1)
  1. MULTIHANCE [Suspect]
     Dosage: 25 ML ONCE IV
     Route: 042
     Dates: start: 20070910, end: 20070910

REACTIONS (2)
  - NAUSEA [None]
  - VOMITING [None]
